FAERS Safety Report 9798925 (Version 3)
Quarter: 2015Q3

REPORT INFORMATION
  Report Type: Spontaneous
  Country: US (occurrence: US)
  Receive Date: 20140106
  Receipt Date: 20150806
  Transmission Date: 20151125
  Serious: No
  Sender: FDA-Public Use
  Company Number: US-GILEAD-2010-0033550

PATIENT
  Age: 78 Year
  Sex: Female
  Weight: 79.38 kg

DRUGS (12)
  1. LETAIRIS [Suspect]
     Active Substance: AMBRISENTAN
     Indication: PULMONARY HYPERTENSION
     Route: 048
     Dates: start: 20091116
  2. WARFARIN [Concomitant]
     Active Substance: WARFARIN
  3. MULTIVITAMIN [Concomitant]
     Active Substance: VITAMINS
  4. ATENOLOL. [Concomitant]
     Active Substance: ATENOLOL
  5. MINOCYCLINE [Concomitant]
     Active Substance: MINOCYCLINE\MINOCYCLINE HYDROCHLORIDE
  6. ACUVITE [Concomitant]
  7. FOLIC ACID. [Concomitant]
     Active Substance: FOLIC ACID
  8. TORSEMIDE. [Concomitant]
     Active Substance: TORSEMIDE
  9. LEVOTHYROXINE. [Concomitant]
     Active Substance: LEVOTHYROXINE
  10. IRON [Concomitant]
     Active Substance: IRON
  11. NIFEDIPINE XL [Concomitant]
     Active Substance: NIFEDIPINE
  12. ARIMIDEX [Concomitant]
     Active Substance: ANASTROZOLE

REACTIONS (1)
  - Anaemia [Unknown]

NARRATIVE: CASE EVENT DATE: 20101022
